FAERS Safety Report 4381552-7 (Version None)
Quarter: 2004Q2

REPORT INFORMATION
  Report Type: 
  Country: None (occurrence: None)
  Receive Date: 20040621
  Receipt Date: 20030130
  Transmission Date: 20050107
  Serious: Yes (Death, Hospitalization, Other)
  Sender: FDA-Public Use
  Company Number: US-MERCK-0302USA00116

PATIENT
  Age: 78 Year
  Sex: Female
  Weight: 89 kg

DRUGS (8)
  1. ZOCOR [Concomitant]
     Route: 048
  2. ULTRAM [Concomitant]
     Route: 065
  3. LOMOTIL [Concomitant]
     Route: 065
  4. PLAVIX [Concomitant]
     Route: 065
  5. HYDROCHLOROTHIAZIDE [Concomitant]
     Route: 065
  6. EVISTA [Concomitant]
     Route: 065
  7. VIOXX [Suspect]
     Indication: ARTHRITIS
     Route: 048
  8. VIOXX [Suspect]
     Route: 048
     Dates: end: 20010228

REACTIONS (11)
  - ARTERIOSCLEROSIS MOENCKEBERG-TYPE [None]
  - BLOOD PRESSURE DECREASED [None]
  - CHEST PAIN [None]
  - COGNITIVE DISORDER [None]
  - COUGH [None]
  - DEEP VEIN THROMBOSIS [None]
  - PULMONARY EMBOLISM [None]
  - PYREXIA [None]
  - RESPIRATORY FAILURE [None]
  - RHINITIS [None]
  - STATUS EPILEPTICUS [None]
